FAERS Safety Report 4650427-8 (Version None)
Quarter: 2005Q2

REPORT INFORMATION
  Report Type: 
  Country: None (occurrence: None)
  Receive Date: 20050429
  Receipt Date: 20050418
  Transmission Date: 20051028
  Serious: Yes (Hospitalization, Disabling)
  Sender: FDA-Public Use
  Company Number: 2005061856

PATIENT
  Age: 37 Year
  Sex: Female
  Weight: 78.9 kg

DRUGS (2)
  1. DEPO-PROVERA [Suspect]
     Indication: CONTRACEPTION
     Dosage: (FIRST INJECTION), INTRAMUSCULAR
     Route: 030
     Dates: start: 20050106, end: 20050106
  2. FLUOXETINE HCL [Concomitant]

REACTIONS (2)
  - AORTIC DISORDER [None]
  - LIPOATROPHY [None]
